FAERS Safety Report 17801155 (Version 4)
Quarter: 2025Q1

REPORT INFORMATION
  Report Type: Report from Study
  Country: GB (occurrence: GB)
  Receive Date: 20200519
  Receipt Date: 20250327
  Transmission Date: 20250409
  Serious: Yes (Death, Hospitalization)
  Sender: ROCHE
  Company Number: GB-ROCHE-2128769

PATIENT
  Age: 80 Year
  Sex: Female

DRUGS (13)
  1. TOCILIZUMAB [Suspect]
     Active Substance: TOCILIZUMAB
     Indication: Rheumatoid arthritis
     Route: 058
     Dates: start: 20180521
  2. TOCILIZUMAB [Suspect]
     Active Substance: TOCILIZUMAB
     Route: 058
     Dates: start: 20180524
  3. TOCILIZUMAB [Suspect]
     Active Substance: TOCILIZUMAB
     Route: 058
     Dates: start: 2018
  4. TOCILIZUMAB [Suspect]
     Active Substance: TOCILIZUMAB
     Route: 058
     Dates: start: 20180615, end: 20250318
  5. TOCILIZUMAB [Suspect]
     Active Substance: TOCILIZUMAB
     Route: 058
  6. CARBOCYSTEINE [Concomitant]
     Active Substance: CARBOCYSTEINE
  7. FOLIC ACID [Concomitant]
     Active Substance: FOLIC ACID
  8. METHOTREXATE [Concomitant]
     Active Substance: METHOTREXATE
  9. OMEPRAZOLE [Concomitant]
     Active Substance: OMEPRAZOLE
  10. ALENDRONIC ACID [Concomitant]
     Active Substance: ALENDRONIC ACID
  11. CALCIUM [Concomitant]
     Active Substance: CALCIUM
  12. ALENDRONIC ACID [Concomitant]
     Active Substance: ALENDRONIC ACID
  13. KEPPRA [Concomitant]
     Active Substance: LEVETIRACETAM

REACTIONS (18)
  - Lower respiratory tract infection [Unknown]
  - Contusion [Unknown]
  - Injection site reaction [Unknown]
  - Pain [Unknown]
  - Condition aggravated [Unknown]
  - Wrong technique in product usage process [Unknown]
  - Tremor [Unknown]
  - Fear of injection [Unknown]
  - Injection site pain [Unknown]
  - Ill-defined disorder [Unknown]
  - Migraine [Unknown]
  - Feeling abnormal [Unknown]
  - Product storage error [Unknown]
  - Lung disorder [Unknown]
  - Pneumonia [Unknown]
  - Infection [Unknown]
  - Malaise [Unknown]
  - Death [Fatal]
